FAERS Safety Report 16565841 (Version 5)
Quarter: 2020Q1

REPORT INFORMATION
  Report Type: Spontaneous
  Country: CA (occurrence: CA)
  Receive Date: 20190712
  Receipt Date: 20200318
  Transmission Date: 20200409
  Serious: Yes (Death, Other)
  Sender: FDA-Public Use
  Company Number: CA-PFIZER INC-2019298169

PATIENT
  Age: 74 Year
  Sex: Male

DRUGS (13)
  1. EXJADE [Suspect]
     Active Substance: DEFERASIROX
     Dosage: 500 MG, 1X/DAY (500 MILLIGRAM, QD)
     Route: 048
  2. PROZAC [Concomitant]
     Active Substance: FLUOXETINE HYDROCHLORIDE
     Dosage: UNK
  3. METFORMIN [METFORMIN HYDROCHLORIDE] [Suspect]
     Active Substance: METFORMIN HYDROCHLORIDE
     Indication: DIABETES MELLITUS
     Dosage: UNK
     Route: 048
  4. EXJADE [Suspect]
     Active Substance: DEFERASIROX
     Dosage: 1500 MG, 1X/DAY (1500 MILLIGRAM, QD)
     Route: 048
  5. EXJADE [Suspect]
     Active Substance: DEFERASIROX
     Indication: IRON OVERLOAD
     Dosage: 1500 MG, UNK (500 MILLIGRAM, Q8HR)
     Route: 048
  6. TAMSULOSIN [Suspect]
     Active Substance: TAMSULOSIN
     Indication: PROSTATIC DISORDER
     Dosage: UNK
     Route: 048
  7. ALLOPURINOL. [Concomitant]
     Active Substance: ALLOPURINOL
     Dosage: UNK
  8. EXJADE [Suspect]
     Active Substance: DEFERASIROX
     Indication: IRON OVERLOAD
     Dosage: 500 MG, 1X/DAY (500 MILLIGRAM, QD)
     Route: 048
  9. SIMVASTATIN. [Suspect]
     Active Substance: SIMVASTATIN
     Indication: BLOOD CHOLESTEROL ABNORMAL
     Dosage: UNK
     Route: 048
  10. CLOPIDOGREL BISULFATE. [Concomitant]
     Active Substance: CLOPIDOGREL BISULFATE
     Dosage: UNK
  11. ZOPICLONE [Suspect]
     Active Substance: ZOPICLONE
     Indication: HYPNOTHERAPY
     Dosage: UNK
     Route: 048
  12. PANTOPRAZOLE [Suspect]
     Active Substance: PANTOPRAZOLE
     Indication: ANTACID THERAPY
     Dosage: UNK
     Route: 048
  13. FLOMAX [MORNIFLUMATE] [Suspect]
     Active Substance: MORNIFLUMATE
     Indication: PROSTATIC DISORDER
     Dosage: UNK
     Route: 048

REACTIONS (7)
  - Serum ferritin abnormal [Fatal]
  - Tooth infection [Fatal]
  - Gastrointestinal pain [Fatal]
  - Death [Fatal]
  - Muscle spasms [Fatal]
  - White blood cell count decreased [Fatal]
  - Malaise [Fatal]
